FAERS Safety Report 10304893 (Version 2)
Quarter: 2014Q3

REPORT INFORMATION
  Report Type: Spontaneous
  Country: NL (occurrence: NL)
  Receive Date: 20140715
  Receipt Date: 20140814
  Transmission Date: 20150326
  Serious: Yes (Hospitalization, Other)
  Sender: FDA-Public Use
  Company Number: NL-JNJFOC-20140707660

PATIENT
  Age: 31 Year
  Sex: Female

DRUGS (7)
  1. LYNESTRENOL [Concomitant]
     Active Substance: LYNESTRENOL
     Indication: CONTRACEPTION
     Route: 065
  2. HALOPERIDOL. [Concomitant]
     Active Substance: HALOPERIDOL
     Indication: MENTAL DISORDER
     Route: 065
  3. AZATHIOPRINE. [Concomitant]
     Active Substance: AZATHIOPRINE
     Indication: CROHN^S DISEASE
     Route: 065
  4. SIMPONI [Suspect]
     Active Substance: GOLIMUMAB
     Indication: CROHN^S DISEASE
     Route: 058
     Dates: start: 20140409
  5. PREDNISOLONE. [Concomitant]
     Active Substance: PREDNISOLONE
     Route: 065
  6. FLUOXETINE [Concomitant]
     Active Substance: FLUOXETINE\FLUOXETINE HYDROCHLORIDE
     Indication: MENTAL DISORDER
     Route: 065
  7. ALLOPURINOL. [Concomitant]
     Active Substance: ALLOPURINOL
     Indication: CROHN^S DISEASE
     Route: 065

REACTIONS (2)
  - Off label use [Unknown]
  - Leukoencephalopathy [Recovering/Resolving]

NARRATIVE: CASE EVENT DATE: 20140409
